FAERS Safety Report 18229210 (Version 1)
Quarter: 2020Q3

REPORT INFORMATION
  Report Type: Report from Study
  Country: US (occurrence: US)
  Receive Date: 20200903
  Receipt Date: 20200903
  Transmission Date: 20201103
  Serious: Yes (Other)
  Sender: FDA-Public Use
  Company Number: US-VANDA PHARMACEUTICALS, INC-2020TASUS004234

PATIENT
  Age: 47 Year
  Sex: Female

DRUGS (1)
  1. HETLIOZ [Suspect]
     Active Substance: TASIMELTEON
     Indication: CIRCADIAN RHYTHM SLEEP DISORDER
     Dosage: 20 MG, QD 1H BEFORE BEDTIME
     Route: 048

REACTIONS (2)
  - Fatigue [Unknown]
  - Appendix disorder [Unknown]

NARRATIVE: CASE EVENT DATE: 20200701
